FAERS Safety Report 4898076-0 (Version None)
Quarter: 2006Q1

REPORT INFORMATION
  Report Type: 
  Country: None (occurrence: None)
  Receive Date: 20060201
  Receipt Date: 20060119
  Transmission Date: 20060701
  Serious: Yes (Hospitalization)
  Sender: FDA-Public Use
  Company Number: US-AMGEN-US166344

PATIENT
  Sex: Female
  Weight: 62.7 kg

DRUGS (1)
  1. PROCRIT [Suspect]
     Indication: ANAEMIA OF MALIGNANT DISEASE
     Route: 058
     Dates: start: 20000101

REACTIONS (2)
  - PLATELET TRANSFUSION [None]
  - WHOLE BLOOD TRANSFUSION [None]
